FAERS Safety Report 20146574 (Version 1)
Quarter: 2021Q4

REPORT INFORMATION
  Report Type: Other
  Country: None (occurrence: US)
  Receive Date: 20211203
  Receipt Date: 20211203
  Transmission Date: 20220303
  Serious: No
  Sender: FDA-Public Use
  Company Number: US-NorthStar Medical Radioisotopes, LLC -2122657

PATIENT

DRUGS (1)
  1. RADIOGENIX SYSTEM [Suspect]
     Active Substance: TECHNETIUM TC-99M SODIUM PERTECHNETATE

REACTIONS (1)
  - Drug ineffective [Unknown]

NARRATIVE: CASE EVENT DATE: 20211116
